FAERS Safety Report 8501354-7 (Version None)
Quarter: 2012Q3

REPORT INFORMATION
  Report Type: 
  Country: None (occurrence: None)
  Receive Date: 20120710
  Receipt Date: 20120702
  Transmission Date: 20120928
  Serious: Yes (Other)
  Sender: FDA-Public Use
  Company Number: US-CELGENEUS-163-21880-11031379

PATIENT
  Sex: Female
  Weight: 67.646 kg

DRUGS (5)
  1. REVLIMID [Suspect]
     Dosage: 10 MILLIGRAM
     Route: 048
     Dates: start: 20100701, end: 20100101
  2. ARANESP [Concomitant]
     Route: 065
  3. REVLIMID [Suspect]
     Dosage: 25 MILLIGRAM
     Route: 048
     Dates: start: 20100610, end: 20100101
  4. REVLIMID [Suspect]
     Dosage: 5 MILLIGRAM
     Route: 048
     Dates: start: 20101001
  5. ZOMETA [Suspect]
     Route: 065

REACTIONS (2)
  - FATIGUE [None]
  - OSTEONECROSIS OF JAW [None]
